FAERS Safety Report 6616920-3 (Version None)
Quarter: 2010Q1

REPORT INFORMATION
  Report Type: 
  Country: None (occurrence: None)
  Receive Date: 20100305
  Receipt Date: 20100223
  Transmission Date: 20100710
  Serious: Yes (Other)
  Sender: FDA-Public Use
  Company Number: US-PFIZER INC-2010024592

PATIENT
  Sex: Female

DRUGS (2)
  1. CHANTIX [Suspect]
  2. INSULIN [Concomitant]
     Dosage: 5X/DAY

REACTIONS (1)
  - BLOOD GLUCOSE ABNORMAL [None]
